FAERS Safety Report 13023885 (Version 1)
Quarter: 2016Q4

REPORT INFORMATION
  Report Type: Spontaneous
  Country: IT (occurrence: IT)
  Receive Date: 20161213
  Receipt Date: 20161213
  Transmission Date: 20170207
  Serious: Yes (Hospitalization)
  Sender: FDA-Public Use
  Company Number: IT-ASTRAZENECA-2016SF30020

PATIENT
  Age: 24743 Day
  Sex: Male

DRUGS (4)
  1. IRESSA [Suspect]
     Active Substance: GEFITINIB
     Indication: LUNG ADENOCARCINOMA METASTATIC
     Route: 048
     Dates: start: 20161024, end: 20161109
  2. LASIX [Concomitant]
     Active Substance: FUROSEMIDE
     Dosage: 25.0MG UNKNOWN
     Route: 048
  3. PANTORC [Concomitant]
     Active Substance: PANTOPRAZOLE SODIUM
     Route: 048
  4. SELEPARINA [Concomitant]
     Active Substance: NADROPARIN CALCIUM
     Indication: THROMBOSIS PROPHYLAXIS
     Dosage: 3800 UI ANTIXA/0,4 ML PREFILLED SYRINGE
     Route: 058

REACTIONS (3)
  - Respiratory failure [Recovering/Resolving]
  - Pulmonary hypertension [Recovering/Resolving]
  - Pyrexia [Recovering/Resolving]

NARRATIVE: CASE EVENT DATE: 20161109
